FAERS Safety Report 5028990-7 (Version None)
Quarter: 2006Q2

REPORT INFORMATION
  Report Type: 
  Country: None (occurrence: None)
  Receive Date: 20060619
  Receipt Date: 20060613
  Transmission Date: 20061013
  Serious: Yes (Death, Hospitalization, Other)
  Sender: FDA-Public Use
  Company Number: US-JNJFOC-20060201763

PATIENT
  Sex: Female
  Weight: 64 kg

DRUGS (14)
  1. DURAGESIC-100 [Suspect]
     Route: 062
  2. DURAGESIC-100 [Suspect]
     Route: 062
  3. DURAGESIC-100 [Suspect]
     Indication: PAIN
     Route: 062
  4. PROMETHAZINE [Suspect]
     Indication: DRUG USE FOR UNKNOWN INDICATION
  5. HYDROCODONE [Suspect]
     Indication: PAIN
  6. ZELNORM [Concomitant]
  7. CYMBALTA [Concomitant]
  8. PREVACID [Concomitant]
  9. LOPRESSOR [Concomitant]
  10. REGLAN [Concomitant]
  11. DIOVAN [Concomitant]
  12. ESTRATEST [Concomitant]
  13. ESTRATEST [Concomitant]
  14. PREDNISONE [Concomitant]

REACTIONS (4)
  - BRONCHITIS BACTERIAL [None]
  - DRUG TOXICITY [None]
  - PNEUMONIA ASPIRATION [None]
  - RESPIRATORY FAILURE [None]
